FAERS Safety Report 5222278-7 (Version None)
Quarter: 2007Q1

REPORT INFORMATION
  Report Type: 
  Country: None (occurrence: None)
  Receive Date: 20070124
  Receipt Date: 20070116
  Transmission Date: 20070707
  Serious: Yes (Hospitalization)
  Sender: FDA-Public Use
  Company Number: ALK_0047_2006

PATIENT
  Age: 46 Year
  Sex: Female
  Weight: 58.514 kg

DRUGS (7)
  1. VIVITROL [Suspect]
     Dosage: 380 MG IM
     Route: 030
  2. SEROQUEL [Concomitant]
  3. TRILEPTAL [Concomitant]
  4. LEXAPRO [Concomitant]
  5. CAMPRAL [Concomitant]
  6. FLONASE [Concomitant]
  7. VITAMIN CAP [Concomitant]

REACTIONS (2)
  - INJECTION SITE MASS [None]
  - MASS [None]
